FAERS Safety Report 5229643-2 (Version None)
Quarter: 2007Q1

REPORT INFORMATION
  Report Type: 
  Country: None (occurrence: None)
  Receive Date: 20070206
  Receipt Date: 20070108
  Transmission Date: 20070707
  Serious: Yes (Hospitalization, Other)
  Sender: FDA-Public Use
  Company Number: GB-RB-005061-07

PATIENT
  Age: 24 Month

DRUGS (1)
  1. SUBUTEX [Suspect]
     Indication: ACCIDENTAL DRUG INTAKE BY CHILD
     Dosage: EXACT DOSAGE UNKNOWN - 2MG OR 8MG
     Route: 065

REACTIONS (1)
  - ACCIDENTAL DRUG INTAKE BY CHILD [None]
